FAERS Safety Report 7866591-3 (Version None)
Quarter: 2011Q4

REPORT INFORMATION
  Report Type: 
  Country: None (occurrence: None)
  Receive Date: 20111028
  Receipt Date: 20110711
  Transmission Date: 20120403
  Serious: No
  Sender: FDA-Public Use
  Company Number: US-GLAXOSMITHKLINE-A0936321A

PATIENT
  Age: 63 Year
  Sex: Female

DRUGS (2)
  1. ADVAIR DISKUS 100/50 [Suspect]
     Indication: ASTHMA
     Dosage: 1PUFF PER DAY
     Route: 055
     Dates: start: 20110707
  2. METFORMIN HCL [Concomitant]

REACTIONS (4)
  - EYE SWELLING [None]
  - THROAT TIGHTNESS [None]
  - OCULAR HYPERAEMIA [None]
  - DYSPHAGIA [None]
